FAERS Safety Report 8841980 (Version 1)
Quarter: 2012Q4

REPORT INFORMATION
  Report Type: Spontaneous
  Country: US (occurrence: None)
  Receive Date: 20121015
  Receipt Date: 20121015
  Transmission Date: 20130627
  Serious: Yes (Hospitalization)
  Sender: FDA-Public Use
  Company Number: None

PATIENT
  Age: 51 Year
  Sex: Female
  Weight: 58.97 kg

DRUGS (1)
  1. ONGLYZA 5MG ASTRAZENECA [Suspect]
     Indication: DIABETES
     Route: 048
     Dates: start: 201207, end: 201208

REACTIONS (4)
  - Blister infected [None]
  - Cardiac failure [None]
  - Fluid overload [None]
  - Bradycardia [None]
